FAERS Safety Report 9877352 (Version 1)
Quarter: 2014Q1

REPORT INFORMATION
  Report Type: Spontaneous
  Country: JP (occurrence: JP)
  Receive Date: 20140206
  Receipt Date: 20140206
  Transmission Date: 20141002
  Serious: Yes (Other)
  Sender: FDA-Public Use
  Company Number: JP-JNJFOC-20140200522

PATIENT
  Age: 6 Decade
  Sex: Male

DRUGS (1)
  1. XEPLION [Suspect]
     Indication: SCHIZOPHRENIA
     Route: 030
     Dates: start: 201312

REACTIONS (1)
  - Altered state of consciousness [Recovered/Resolved]
